FAERS Safety Report 22126124 (Version 1)
Quarter: 2023Q1

REPORT INFORMATION
  Report Type: Spontaneous
  Country: US (occurrence: US)
  Receive Date: 20230322
  Receipt Date: 20230322
  Transmission Date: 20230418
  Serious: No
  Sender: FDA-Public Use
  Company Number: US-ALLERGAN-2220383US

PATIENT
  Age: 71 Year
  Sex: Male
  Weight: 111.13 kg

DRUGS (2)
  1. LUMIGAN [Suspect]
     Active Substance: BIMATOPROST
     Indication: Intraocular pressure increased
     Dosage: 2 GTT, QPM
     Route: 047
     Dates: start: 2019, end: 20220617
  2. BENICAR [Concomitant]
     Active Substance: OLMESARTAN MEDOXOMIL
     Indication: Hypertension
     Dosage: 20 MG

REACTIONS (5)
  - Foreign body in eye [Recovered/Resolved]
  - Ocular discomfort [Not Recovered/Not Resolved]
  - Eye pain [Recovered/Resolved]
  - Dry eye [Not Recovered/Not Resolved]
  - Product impurity [Unknown]

NARRATIVE: CASE EVENT DATE: 20220617
